FAERS Safety Report 22387519 (Version 4)
Quarter: 2023Q4

REPORT INFORMATION
  Report Type: Spontaneous
  Country: JP (occurrence: JP)
  Receive Date: 20230531
  Receipt Date: 20231114
  Transmission Date: 20240110
  Serious: Yes (Other)
  Sender: FDA-Public Use
  Company Number: JP-AMGEN-JPNSP2023090680

PATIENT
  Age: 66 Year
  Sex: Male

DRUGS (4)
  1. OTEZLA [Suspect]
     Active Substance: APREMILAST
     Indication: Psoriatic arthropathy
     Dosage: 30 MILLIGRAM, BID
     Route: 048
     Dates: start: 20180927
  2. OTEZLA [Suspect]
     Active Substance: APREMILAST
     Indication: Psoriasis
  3. BCG VACCINE [Suspect]
     Active Substance: BCG VACCINE
     Indication: Bladder cancer
     Dosage: UNK
     Route: 065
     Dates: end: 20230817
  4. PREDONINE [Concomitant]
     Active Substance: PREDNISOLONE
     Indication: Arthritis
     Dosage: 10 MILLIGRAM
     Route: 065
     Dates: start: 20230817

REACTIONS (2)
  - Bladder cancer [Not Recovered/Not Resolved]
  - Arthritis reactive [Not Recovered/Not Resolved]
